FAERS Safety Report 23845546 (Version 1)
Quarter: 2024Q2

REPORT INFORMATION
  Report Type: Spontaneous
  Country: CA (occurrence: CA)
  Receive Date: 20240511
  Receipt Date: 20240511
  Transmission Date: 20240716
  Serious: Yes (Hospitalization)
  Sender: FDA-Public Use
  Company Number: CA-TEVA-VS-3197436

PATIENT
  Age: 53 Year
  Sex: Female

DRUGS (1)
  1. PEMETREXED DISODIUM [Suspect]
     Active Substance: PEMETREXED DISODIUM
     Indication: Product used for unknown indication
     Dosage: DOSE FORM:POWDER FOR SOLUTION
     Route: 042

REACTIONS (3)
  - Pericardial effusion [Recovered/Resolved]
  - Pneumonia [Recovered/Resolved]
  - Myofascial pain syndrome [Recovered/Resolved]
